FAERS Safety Report 11618945 (Version 1)
Quarter: 2015Q4

REPORT INFORMATION
  Report Type: Spontaneous
  Country: HK (occurrence: HK)
  Receive Date: 20151012
  Receipt Date: 20151012
  Transmission Date: 20160304
  Serious: Yes (Hospitalization, Other)
  Sender: FDA-Public Use
  Company Number: HK-ACTAVIS-2015-21751

PATIENT
  Age: 61 Year
  Sex: Female

DRUGS (4)
  1. BEVACIZUMAB [Suspect]
     Active Substance: BEVACIZUMAB
     Indication: COLON CANCER METASTATIC
     Dosage: UNK, EVERY 2 WEEKS
     Route: 065
  2. CAPECITABINE (UNKNOWN) [Suspect]
     Active Substance: CAPECITABINE
     Indication: COLON CANCER METASTATIC
     Dosage: UNK, EVERY 2 WEEKS
     Route: 065
  3. CETUXIMAB [Suspect]
     Active Substance: CETUXIMAB
     Indication: COLON CANCER METASTATIC
     Dosage: UNK, EVERY 2 WEEKS
     Route: 065
  4. IRINOTECAN (UNKNOWN) [Suspect]
     Active Substance: IRINOTECAN
     Indication: COLON CANCER METASTATIC
     Dosage: UNK, EVERY 2 WEEKS
     Route: 065

REACTIONS (2)
  - Febrile neutropenia [Unknown]
  - Enteritis [Recovered/Resolved]
